FAERS Safety Report 7694250-9 (Version None)
Quarter: 2011Q3

REPORT INFORMATION
  Report Type: 
  Country: None (occurrence: None)
  Receive Date: 20110819
  Receipt Date: 20110812
  Transmission Date: 20111222
  Serious: Yes (Hospitalization)
  Sender: FDA-Public Use
  Company Number: US-GLAXOSMITHKLINE-A0940912A

PATIENT
  Age: 58 Year
  Sex: Male

DRUGS (6)
  1. KEPPRA [Concomitant]
  2. ASMANEX TWISTHALER [Suspect]
     Indication: PRODUCT USED FOR UNKNOWN INDICATION
     Route: 065
  3. ADVAIR DISKUS 100/50 [Suspect]
     Indication: ASTHMA
     Dosage: 1PUFF TWICE PER DAY
     Route: 055
     Dates: start: 20080101
  4. DILANTIN [Concomitant]
  5. ALLERGY SHOTS [Concomitant]
  6. SINGULAIR [Concomitant]

REACTIONS (4)
  - FEELING JITTERY [None]
  - NERVOUSNESS [None]
  - ADVERSE EVENT [None]
  - EXPIRED DRUG ADMINISTERED [None]
